FAERS Safety Report 9339052 (Version 1)
Quarter: 2013Q2

REPORT INFORMATION
  Report Type: Spontaneous
  Country: US (occurrence: None)
  Receive Date: 20130529
  Receipt Date: 20130529
  Transmission Date: 20140414
  Serious: Yes (Other)
  Sender: FDA-Public Use
  Company Number: 2013036203

PATIENT
  Age: 33 Year
  Sex: Female
  Weight: 74.84 kg

DRUGS (18)
  1. HIZENTRA (IMMUNOGLOBULIN HUMAN NORMAL) [Suspect]
     Indication: HYPOGLOBULINAEMIA
     Dosage: 10 G 1X/WEEK, 3-5 SITES USING PUMP OVER 1-2 HOURS
     Route: 058
     Dates: start: 20130503, end: 20130503
  2. HIZENTRA (IMMUNOGLOBULIN HUMAN NORMAL) [Suspect]
     Indication: IMMUNODEFICIENCY
     Dosage: 10 G 1X/WEEK, 3-5 SITES USING PUMP OVER 1-2 HOURS
     Route: 058
     Dates: start: 20130503, end: 20130503
  3. ACETAMINOPHEN (PARACETAMOL) [Concomitant]
  4. DIPHENHYDRAMINE (DIPHENHYDRAMINE) [Concomitant]
  5. LIDOCAINE/PRILOCAINE (EMLA /00675501/) [Concomitant]
  6. EPI-PEN (EPINEPHRINE HYDROCHLORIDE) [Concomitant]
  7. FIORICET (AXOTAL /00727001/) [Concomitant]
  8. FLUDROCORTISON (FLUDROCORTISONE ACETATE) [Concomitant]
  9. TESSALON PERLE (BENZONATATE) [Concomitant]
  10. HYDROMET (HYDROCODONE W/HOMATROPINE) [Concomitant]
  11. VITAMIN B12 (CYANOCOBALAMIN) [Concomitant]
  12. SYNTHROID (LEVOTHYROXINE SODIUM) [Concomitant]
  13. PROMETHAZINE (PROMETHAZINE) [Concomitant]
  14. ZYRTEC (CETIRIZINE HYDROCHLORIDE) [Concomitant]
  15. PULMICORT (BUDESONIDE) [Concomitant]
  16. MUCINEX (GUAIFENESIN) [Concomitant]
  17. ALBUTEROL HFA (SALBUTAMOL) [Concomitant]
  18. CENTRUM TABLET (CENTRUM /00554501/) [Concomitant]

REACTIONS (2)
  - Nephrolithiasis [None]
  - Rash [None]
